FAERS Safety Report 6957440-6 (Version None)
Quarter: 2010Q3

REPORT INFORMATION
  Report Type: 
  Country: None (occurrence: None)
  Receive Date: 20100831
  Receipt Date: 20100819
  Transmission Date: 20110219
  Serious: Yes (Hospitalization)
  Sender: FDA-Public Use
  Company Number: JP-TYCO HEALTHCARE/MALLINCKRODT-T201001849

PATIENT
  Age: 66 Year
  Sex: Male

DRUGS (4)
  1. ANAFRANIL CAP [Suspect]
     Indication: MAJOR DEPRESSION
     Dosage: UNK
     Dates: start: 20070724, end: 20070807
  2. ANAFRANIL CAP [Suspect]
     Dosage: 150 MG, QD
     Dates: start: 20070808, end: 20070812
  3. PAROXETINE HCL [Suspect]
     Indication: MAJOR DEPRESSION
     Dosage: 20 MG, QD
     Dates: end: 20070601
  4. PAROXETINE HCL [Suspect]
     Dosage: 40 MG, QD
     Dates: start: 20070601, end: 20070801

REACTIONS (8)
  - ANAEMIA [None]
  - CATATONIA [None]
  - DELUSION [None]
  - DEPRESSION [None]
  - DRUG EFFECT INCREASED [None]
  - HALLUCINATIONS, MIXED [None]
  - SEROTONIN SYNDROME [None]
  - SUICIDE ATTEMPT [None]
